FAERS Safety Report 19453966 (Version 2)
Quarter: 2021Q3

REPORT INFORMATION
  Report Type: Spontaneous
  Country: US (occurrence: US)
  Receive Date: 20210623
  Receipt Date: 20210706
  Transmission Date: 20211014
  Serious: No
  Sender: FDA-Public Use
  Company Number: NVSC2021US135105

PATIENT
  Sex: Female

DRUGS (1)
  1. XIIDRA [Suspect]
     Active Substance: LIFITEGRAST
     Indication: DRY EYE
     Dosage: 1 DRP, BID (BOTH EYE)
     Route: 065

REACTIONS (4)
  - Product use complaint [Unknown]
  - Product dose omission issue [Unknown]
  - Product container issue [Unknown]
  - Lacrimation increased [Unknown]
